FAERS Safety Report 12330028 (Version 2)
Quarter: 2016Q2

REPORT INFORMATION
  Report Type: Spontaneous
  Country: MA (occurrence: MA)
  Receive Date: 20160504
  Receipt Date: 20160505
  Transmission Date: 20160815
  Serious: Yes (Death, Hospitalization, Other)
  Sender: FDA-Public Use
  Company Number: PHHY2016MA059534

PATIENT
  Age: 49 Year
  Sex: Female

DRUGS (10)
  1. DEXAMETHASONE. [Concomitant]
     Active Substance: DEXAMETHASONE
     Indication: CHEMOTHERAPY
     Route: 065
  2. MYCOPHENOLATE MOFETIL. [Suspect]
     Active Substance: MYCOPHENOLATE MOFETIL
     Indication: IMMUNOSUPPRESSANT DRUG THERAPY
  3. MYCOPHENOLATE MOFETIL. [Suspect]
     Active Substance: MYCOPHENOLATE MOFETIL
     Indication: RENAL TRANSPLANT
     Route: 065
  4. PREDNISOLONE. [Suspect]
     Active Substance: PREDNISOLONE
     Indication: IMMUNOSUPPRESSANT DRUG THERAPY
  5. CYCLOPHOSPHAMIDE. [Concomitant]
     Active Substance: CYCLOPHOSPHAMIDE
     Indication: CHEMOTHERAPY
     Route: 065
  6. THALIDOMIDE [Concomitant]
     Active Substance: THALIDOMIDE
     Indication: CHEMOTHERAPY
     Route: 065
  7. PREDNISOLONE. [Suspect]
     Active Substance: PREDNISOLONE
     Indication: RENAL TRANSPLANT
     Route: 065
  8. THYMOGLOBULIN [Concomitant]
     Active Substance: LAPINE T-LYMPHOCYTE IMMUNE GLOBULIN
     Indication: SURGICAL PRECONDITIONING
     Route: 065
  9. CICLOSPORIN [Suspect]
     Active Substance: CYCLOSPORINE
     Indication: RENAL TRANSPLANT
     Route: 065
  10. CICLOSPORIN [Suspect]
     Active Substance: CYCLOSPORINE
     Indication: IMMUNOSUPPRESSANT DRUG THERAPY

REACTIONS (17)
  - Nephrocalcinosis [Unknown]
  - Cholestasis [Unknown]
  - Liver injury [Unknown]
  - Generalised oedema [Unknown]
  - Hepatic siderosis [Unknown]
  - Proteinuria [Unknown]
  - Renal tubular necrosis [Unknown]
  - Complications of transplanted kidney [Unknown]
  - Pleural effusion [Unknown]
  - Hepatosplenomegaly [Unknown]
  - Hypoalbuminaemia [Unknown]
  - Tubulointerstitial nephritis [Unknown]
  - Ascites [Unknown]
  - Septic shock [Fatal]
  - Vomiting [Unknown]
  - Diarrhoea [Unknown]
  - Hypogammaglobulinaemia [Unknown]
